FAERS Safety Report 8050674-1 (Version None)
Quarter: 2012Q1

REPORT INFORMATION
  Report Type: 
  Country: None (occurrence: None)
  Receive Date: 20120117
  Receipt Date: 20120117
  Transmission Date: 20120608
  Serious: Yes (Other)
  Sender: FDA-Public Use
  Company Number: None

PATIENT
  Age: 8 Year
  Sex: Male
  Weight: 61.234 kg

DRUGS (1)
  1. TOPAMAX [Suspect]
     Indication: AFFECTIVE DISORDER
     Dosage: 25MG
     Route: 048
     Dates: start: 20120108, end: 20120113

REACTIONS (5)
  - AGITATION [None]
  - AGGRESSION [None]
  - CEREBROVASCULAR ACCIDENT [None]
  - EXPRESSIVE LANGUAGE DISORDER [None]
  - INTRAOCULAR PRESSURE INCREASED [None]
